FAERS Safety Report 4391127-1 (Version None)
Quarter: 2004Q2

REPORT INFORMATION
  Report Type: 
  Country: None (occurrence: None)
  Receive Date: 20040621
  Receipt Date: 20040219
  Transmission Date: 20050107
  Serious: Yes (Other)
  Sender: FDA-Public Use
  Company Number: USA-2003-0009609

PATIENT
  Age: 49 Year
  Sex: Male
  Weight: 90.7 kg

DRUGS (1)
  1. OXYCONTIN [Suspect]
     Dosage: 20 MG, Q12H, ORAL
     Route: 048

REACTIONS (5)
  - ANXIETY [None]
  - DEPRESSION [None]
  - DRUG DEPENDENCE [None]
  - DRUG WITHDRAWAL SYNDROME [None]
  - PAIN [None]
